FAERS Safety Report 6030379-9 (Version None)
Quarter: 2009Q1

REPORT INFORMATION
  Report Type: 
  Country: None (occurrence: None)
  Receive Date: 20090107
  Receipt Date: 20080806
  Transmission Date: 20090719
  Serious: No
  Sender: FDA-Public Use
  Company Number: US-BAYER-200813303BCC

PATIENT
  Age: 30 Year
  Sex: Female
  Weight: 136 kg

DRUGS (2)
  1. ALEVE [Suspect]
     Indication: TOOTHACHE
     Dosage: UNIT DOSE: 220 MG
     Route: 048
     Dates: start: 20080802, end: 20080805
  2. DOXYCYCLINE [Concomitant]
     Route: 065

REACTIONS (1)
  - SWELLING FACE [None]
